FAERS Safety Report 21322172 (Version 2)
Quarter: 2022Q4

REPORT INFORMATION
  Report Type: Report from Study
  Country: IN (occurrence: IN)
  Receive Date: 20220912
  Receipt Date: 20221012
  Transmission Date: 20230113
  Serious: Yes (Other)
  Sender: FDA-Public Use
  Company Number: IN-NOVARTISPH-NVSC2022IN204305

PATIENT
  Age: 45 Year
  Sex: Female

DRUGS (2)
  1. CERITINIB [Suspect]
     Active Substance: CERITINIB
     Indication: Anaplastic lymphoma kinase gene mutation
     Dosage: 450 MG, QD
     Route: 065
     Dates: start: 20211123, end: 20220802
  2. CERITINIB [Suspect]
     Active Substance: CERITINIB
     Dosage: 450 MG, QD
     Route: 065
     Dates: start: 20220930

REACTIONS (3)
  - Lung disorder [Unknown]
  - Anaplastic lymphoma kinase gene mutation [Unknown]
  - Disease progression [Unknown]

NARRATIVE: CASE EVENT DATE: 20220930
